FAERS Safety Report 23135519 (Version 2)
Quarter: 2023Q4

REPORT INFORMATION
  Report Type: Spontaneous
  Country: US (occurrence: US)
  Receive Date: 20231101
  Receipt Date: 20231113
  Transmission Date: 20240110
  Serious: Yes (Hospitalization, Other)
  Sender: FDA-Public Use
  Company Number: US-TEVA-2023-US-2940186

PATIENT
  Sex: Male

DRUGS (18)
  1. TRIHEXYPHENIDYL [Suspect]
     Active Substance: TRIHEXYPHENIDYL
     Indication: Dystonia
     Route: 065
  2. TRIHEXYPHENIDYL [Suspect]
     Active Substance: TRIHEXYPHENIDYL
     Dosage: 1.2 MILLIGRAM DAILY; THREE TIMES A DAY (DURING HOSPITALISATION)
     Route: 065
  3. TRIHEXYPHENIDYL [Suspect]
     Active Substance: TRIHEXYPHENIDYL
     Dosage: 6 MILLIGRAM DAILY; THREE TIMES A DAY (DURING HOSPITALISATION; INCREASED DOSE)
     Route: 065
  4. CLONAZEPAM [Suspect]
     Active Substance: CLONAZEPAM
     Indication: Dystonia
     Route: 065
  5. CLONAZEPAM [Suspect]
     Active Substance: CLONAZEPAM
     Route: 065
  6. CLONIDINE [Suspect]
     Active Substance: CLONIDINE
     Indication: Dystonia
     Dosage: 300 MICROGRAM DAILY; THREE TIMES A DAY
     Route: 065
  7. DIAZEPAM [Suspect]
     Active Substance: DIAZEPAM
     Indication: Dystonia
     Dosage: 30 MILLIGRAM DAILY; THREE TIMES A DAY
     Route: 065
  8. DEXMEDETOMIDINE [Suspect]
     Active Substance: DEXMEDETOMIDINE
     Indication: Dystonia
     Route: 041
  9. DEXMEDETOMIDINE [Suspect]
     Active Substance: DEXMEDETOMIDINE
     Dosage: 48 UG/KG DAILY;
     Route: 041
  10. GABAPENTIN [Suspect]
     Active Substance: GABAPENTIN
     Indication: Dystonia
     Dosage: 150 MILLIGRAM DAILY; THREE TIMES A DAY
     Route: 065
  11. GABAPENTIN [Suspect]
     Active Substance: GABAPENTIN
     Dosage: 300 MILLIGRAM DAILY; INCREASED DOSE; TWO TIMES A DAY
     Route: 065
  12. MIDAZOLAM [Suspect]
     Active Substance: MIDAZOLAM
     Indication: Dystonia
     Route: 041
  13. MIDAZOLAM [Suspect]
     Active Substance: MIDAZOLAM
     Dosage: 9.6 MG/KG DAILY;
     Route: 041
  14. TETRABENAZINE [Suspect]
     Active Substance: TETRABENAZINE
     Indication: Dystonia
     Route: 041
  15. VALPROIC ACID [Concomitant]
     Active Substance: VALPROIC ACID
     Indication: Seizure
     Route: 065
  16. VECURONIUM [Concomitant]
     Active Substance: VECURONIUM BROMIDE
     Indication: Product used for unknown indication
     Route: 065
  17. BACLOFEN [Concomitant]
     Active Substance: BACLOFEN
     Indication: Product used for unknown indication
     Dosage: 15 MILLIGRAM DAILY; THREE TIMES A DAY
     Route: 065
  18. BACLOFEN [Concomitant]
     Active Substance: BACLOFEN
     Dosage: 20 MILLIGRAM DAILY; TWO TIMES A DAY
     Route: 065

REACTIONS (2)
  - Anticholinergic syndrome [Unknown]
  - Drug ineffective [Unknown]
